FAERS Safety Report 20845940 (Version 4)
Quarter: 2022Q3

REPORT INFORMATION
  Report Type: Spontaneous
  Country: US (occurrence: US)
  Receive Date: 20220518
  Receipt Date: 20220811
  Transmission Date: 20221027
  Serious: No
  Sender: FDA-Public Use
  Company Number: US-PFIZER INC-202200484355

PATIENT
  Age: 57 Year
  Sex: Female

DRUGS (1)
  1. XELJANZ XR [Suspect]
     Active Substance: TOFACITINIB CITRATE
     Indication: Rheumatoid arthritis
     Dosage: 11 MG, 1X/DAY
     Route: 048
     Dates: start: 202202

REACTIONS (8)
  - Product dose omission issue [Unknown]
  - Arthralgia [Not Recovered/Not Resolved]
  - Joint swelling [Unknown]
  - Depressed mood [Unknown]
  - Illness [Unknown]
  - Ear infection [Unknown]
  - Sinusitis [Unknown]
  - Arthritis [Unknown]

NARRATIVE: CASE EVENT DATE: 20220101
